FAERS Safety Report 11603386 (Version 1)
Quarter: 2015Q4

REPORT INFORMATION
  Report Type: Spontaneous
  Country: US (occurrence: None)
  Receive Date: 20151005
  Receipt Date: 20151005
  Transmission Date: 20160304
  Serious: No
  Sender: FDA-Public Use
  Company Number: None

PATIENT
  Age: 28 Year
  Sex: Female
  Weight: 86.18 kg

DRUGS (7)
  1. ADDERALL [Concomitant]
     Active Substance: AMPHETAMINE ASPARTATE\AMPHETAMINE SULFATE\DEXTROAMPHETAMINE SACCHARATE\DEXTROAMPHETAMINE SULFATE
  2. MAXALT [Concomitant]
     Active Substance: RIZATRIPTAN BENZOATE
  3. MIRENA [Suspect]
     Active Substance: LEVONORGESTREL
  4. TOPAMAX [Concomitant]
     Active Substance: TOPIRAMATE
  5. WELLBUTRIN SR [Concomitant]
     Active Substance: BUPROPION HYDROCHLORIDE
  6. FAMOTIDINE. [Concomitant]
     Active Substance: FAMOTIDINE
  7. ATARAX [Concomitant]
     Active Substance: HYDROXYZINE\HYDROXYZINE HYDROCHLORIDE

REACTIONS (20)
  - Pelvic pain [None]
  - Device dislocation [None]
  - Activities of daily living impaired [None]
  - Sleep attacks [None]
  - Ovarian cyst [None]
  - Weight increased [None]
  - Fatigue [None]
  - Complication of device insertion [None]
  - Procedural pain [None]
  - Vaginal haemorrhage [None]
  - Migraine [None]
  - Muscle spasms [None]
  - Nausea [None]
  - Uterine disorder [None]
  - Dizziness [None]
  - Abdominal distension [None]
  - Breast disorder [None]
  - Alopecia [None]
  - Vomiting [None]
  - Adnexa uteri pain [None]

NARRATIVE: CASE EVENT DATE: 20151001
